FAERS Safety Report 5341304-8 (Version None)
Quarter: 2007Q2

REPORT INFORMATION
  Report Type: 
  Country: None (occurrence: None)
  Receive Date: 20070530
  Receipt Date: 20070515
  Transmission Date: 20071010
  Serious: Yes (Hospitalization)
  Sender: FDA-Public Use
  Company Number: 2007SP001819

PATIENT
  Age: 61 Year
  Sex: Female
  Weight: 53.5244 kg

DRUGS (3)
  1. XOPENEX [Suspect]
     Indication: CHRONIC OBSTRUCTIVE PULMONARY DISEASE
     Dosage: INHALATION
     Route: 055
  2. QVAR 40 [Concomitant]
  3. PROPYLTHIOURACIL [Concomitant]

REACTIONS (12)
  - CANDIDIASIS [None]
  - CHRONIC OBSTRUCTIVE PULMONARY DISEASE [None]
  - CLUBBING [None]
  - CONDITION AGGRAVATED [None]
  - CYANOSIS [None]
  - DEEP VEIN THROMBOSIS [None]
  - NAUSEA [None]
  - PLEURAL EFFUSION [None]
  - PNEUMONIA ASPIRATION [None]
  - RALES [None]
  - RHONCHI [None]
  - SINUS TACHYCARDIA [None]
